FAERS Safety Report 4652225-8 (Version None)
Quarter: 2005Q2

REPORT INFORMATION
  Report Type: 
  Country: None (occurrence: None)
  Receive Date: 20050502
  Receipt Date: 20050418
  Transmission Date: 20051028
  Serious: Yes (Other)
  Sender: FDA-Public Use
  Company Number: 2005026763

PATIENT
  Age: 12 Year
  Sex: Male
  Weight: 51 kg

DRUGS (3)
  1. ZELDOX (CAPSULES) (ZIPRASIDONE) [Suspect]
     Indication: DELIRIUM
     Dosage: 160 MG (80 MG, 2 IN 1 D) ORAL
     Route: 048
     Dates: start: 20050118, end: 20050208
  2. ZELDOX (CAPSULES) (ZIPRASIDONE) [Suspect]
     Indication: HALLUCINATION
     Dosage: 160 MG (80 MG, 2 IN 1 D) ORAL
     Route: 048
     Dates: start: 20050118, end: 20050208
  3. DIAZEPAM [Concomitant]

REACTIONS (3)
  - EXTRAPYRAMIDAL DISORDER [None]
  - PYREXIA [None]
  - THERAPY NON-RESPONDER [None]
